FAERS Safety Report 9067112 (Version 2)
Quarter: 2013Q2

REPORT INFORMATION
  Report Type: Spontaneous
  Country: US (occurrence: US)
  Receive Date: 20130214
  Receipt Date: 20130515
  Transmission Date: 20140414
  Serious: Yes (Hospitalization)
  Sender: FDA-Public Use
  Company Number: US-BAYER-2013-018066

PATIENT
  Age: 40 Year
  Sex: Female

DRUGS (9)
  1. YAZ [Suspect]
     Dosage: UNK
     Dates: start: 2008, end: 2009
  2. OCELLA [Suspect]
     Dosage: UNK
     Dates: start: 2008, end: 2009
  3. YASMIN [Suspect]
     Dosage: UNK
     Dates: start: 2008, end: 2009
  4. TREXIMET [Concomitant]
     Indication: MIGRAINE
     Dosage: 85 MG/500MG Q 2HR (EVERY TWO HOURS) PRN (NEEDED)
  5. CIPROFLOXACIN [Concomitant]
     Indication: URINARY TRACT INFECTION
     Dosage: 500 MG, UNK
  6. ASPIRIN [Concomitant]
     Indication: MIGRAINE
     Dosage: 500 MG, PRN
  7. PROTONIX [Concomitant]
  8. CIPRO [Concomitant]
     Dosage: 500 MG, BID
  9. ORAL CONTRACEPTIVE NOS [Concomitant]

REACTIONS (8)
  - Pulmonary embolism [Recovered/Resolved]
  - Injury [Recovered/Resolved]
  - Pain [Recovered/Resolved]
  - Emotional distress [None]
  - General physical health deterioration [Recovered/Resolved]
  - Anxiety [None]
  - Abdominal pain [None]
  - Pain [None]
